FAERS Safety Report 9731267 (Version 1)
Quarter: 2013Q4

REPORT INFORMATION
  Report Type: Spontaneous
  Country: US (occurrence: US)
  Receive Date: 20131203
  Receipt Date: 20131203
  Transmission Date: 20140711
  Serious: Yes (Other)
  Sender: FDA-Public Use
  Company Number: US-BAYER-2013-144509

PATIENT
  Sex: Female

DRUGS (3)
  1. BETASERON [Suspect]
  2. NEURONTIN [Concomitant]
  3. VICODIN [Concomitant]
     Dosage: UNK UNK, BID

REACTIONS (2)
  - Multiple sclerosis [None]
  - Stress [None]
